FAERS Safety Report 6019795-9 (Version None)
Quarter: 2008Q4

REPORT INFORMATION
  Report Type: 
  Country: None (occurrence: None)
  Receive Date: 20081224
  Receipt Date: 20081218
  Transmission Date: 20090506
  Serious: Yes (Other)
  Sender: FDA-Public Use
  Company Number: BR-GENENTECH-274401

PATIENT

DRUGS (4)
  1. AVASTIN [Suspect]
     Indication: CHOROIDAL NEOVASCULARISATION
     Dosage: 1.25 MG, X2
     Route: 031
  2. AVASTIN [Suspect]
     Indication: MACULAR DEGENERATION
  3. STRONTIUM [Suspect]
     Indication: CHOROIDAL NEOVASCULARISATION
     Dosage: 24 GY, SINGLE
  4. STRONTIUM [Suspect]
     Indication: MACULAR DEGENERATION

REACTIONS (1)
  - VITREOUS HAEMORRHAGE [None]
